FAERS Safety Report 9789714 (Version 1)
Quarter: 2013Q4

REPORT INFORMATION
  Report Type: Spontaneous
  Country: MA (occurrence: None)
  Receive Date: 20131227
  Receipt Date: 20131227
  Transmission Date: 20140711
  Serious: Yes (Life-Threatening, Hospitalization)
  Sender: FDA-Public Use
  Company Number: 2013P1022136

PATIENT
  Age: 27 Year
  Sex: Female

DRUGS (1)
  1. AMLODIPINE [Suspect]
     Route: 048

REACTIONS (11)
  - Lethargy [None]
  - Peripheral coldness [None]
  - Blood pressure decreased [None]
  - Sinus tachycardia [None]
  - Nausea [None]
  - Respiratory rate increased [None]
  - Oxygen saturation decreased [None]
  - Electrocardiogram ST-T change [None]
  - Toxicity to various agents [None]
  - Blood creatinine increased [None]
  - Suicide attempt [None]
